FAERS Safety Report 8256180-3 (Version None)
Quarter: 2012Q2

REPORT INFORMATION
  Report Type: 
  Country: None (occurrence: None)
  Receive Date: 20120403
  Receipt Date: 20120329
  Transmission Date: 20120825
  Serious: Yes (Hospitalization)
  Sender: FDA-Public Use
  Company Number: FR-PFIZER INC-2011265134

PATIENT
  Age: 75 Year
  Sex: Female
  Weight: 153 kg

DRUGS (3)
  1. EPLERENONE [Suspect]
     Indication: CYTOTOXIC CARDIOMYOPATHY
     Dosage: 25 MG, 1X/DAY
     Dates: start: 20081107
  2. LASIX [Concomitant]
     Dosage: 40 MG, UNK
  3. LASIX [Concomitant]
     Dosage: UNK
     Dates: start: 20080101

REACTIONS (3)
  - IRON DEFICIENCY ANAEMIA [None]
  - INTESTINAL POLYP [None]
  - GASTROINTESTINAL HAEMORRHAGE [None]
